FAERS Safety Report 5612495-6 (Version None)
Quarter: 2008Q1

REPORT INFORMATION
  Report Type: 
  Country: None (occurrence: None)
  Receive Date: 20080204
  Receipt Date: 20080129
  Transmission Date: 20080703
  Serious: Yes (Death)
  Sender: FDA-Public Use
  Company Number: US-ASTRAZENECA-2008AC00319

PATIENT
  Age: 3 Year
  Sex: Female

DRUGS (3)
  1. LIDOCAINE HCL VISCOUS [Suspect]
     Indication: ORAL HERPES
     Dosage: ADMINISTERED TWICE VIA SWAB
     Route: 002
  2. LIDOCAINE HCL VISCOUS [Suspect]
     Dosage: GARGLED/SWALLOWED }1TBSP
     Route: 048
  3. LIDOCAINE HCL VISCOUS [Suspect]
     Dosage: GARGLED/SWALLOWED }1TBSP 3 TIMES
     Route: 048

REACTIONS (4)
  - ACCIDENTAL OVERDOSE [None]
  - DEPRESSED LEVEL OF CONSCIOUSNESS [None]
  - RESPIRATORY ARREST [None]
  - WRONG TECHNIQUE IN DRUG USAGE PROCESS [None]
